FAERS Safety Report 15226944 (Version 1)
Quarter: 2018Q3

REPORT INFORMATION
  Report Type: Report from Study
  Country: US (occurrence: US)
  Receive Date: 20180801
  Receipt Date: 20180801
  Transmission Date: 20181010
  Serious: Yes (Other)
  Sender: FDA-Public Use
  Company Number: US-BIOGEN-2018BI00615146

PATIENT
  Sex: Female

DRUGS (1)
  1. TECFIDERA [Suspect]
     Active Substance: DIMETHYL FUMARATE
     Indication: MULTIPLE SCLEROSIS
     Dosage: LATE 2017
     Route: 065
     Dates: end: 2017

REACTIONS (6)
  - Rash [Unknown]
  - Meningeal disorder [Unknown]
  - Central nervous system lesion [Unknown]
  - Balance disorder [Unknown]
  - Overdose [Unknown]
  - Fatigue [Unknown]
